FAERS Safety Report 11325188 (Version 2)
Quarter: 2016Q2

REPORT INFORMATION
  Report Type: Spontaneous
  Country: JP (occurrence: JP)
  Receive Date: 20150730
  Receipt Date: 20160502
  Transmission Date: 20160815
  Serious: Yes (Hospitalization)
  Sender: FDA-Public Use
  Company Number: JP-GLAXOSMITHKLINE-JP2015GSK109337

PATIENT
  Age: 56 Year
  Sex: Female

DRUGS (7)
  1. ALLEGRA [Concomitant]
     Active Substance: FEXOFENADINE HYDROCHLORIDE
     Indication: PRODUCT USED FOR UNKNOWN INDICATION
  2. MAGMITT [Concomitant]
     Active Substance: MAGNESIUM OXIDE
     Indication: PRODUCT USED FOR UNKNOWN INDICATION
  3. VONOPRAZAN FUMARATE [Concomitant]
     Indication: PRODUCT USED FOR UNKNOWN INDICATION
  4. DAIKENCHUTO [Suspect]
     Active Substance: HERBALS
     Indication: ABDOMINAL DISTENSION
     Dosage: 1 DF, UNK
     Route: 048
     Dates: start: 20150508, end: 20150518
  5. BOFUTSUSHOSAN [Suspect]
     Active Substance: HERBALS
     Indication: OEDEMA
     Dosage: UNK
     Route: 048
     Dates: start: 201502, end: 20150518
  6. GASCON [Concomitant]
     Active Substance: DIMETHICONE
     Indication: PRODUCT USED FOR UNKNOWN INDICATION
  7. OMEGA-3-ACID ETHYL ESTERS. [Suspect]
     Active Substance: OMEGA-3-ACID ETHYL ESTERS
     Indication: HYPERLIPIDAEMIA
     Dosage: 2 G, UNK
     Route: 048
     Dates: start: 201502, end: 20150518

REACTIONS (1)
  - Liver disorder [Unknown]

NARRATIVE: CASE EVENT DATE: 20150501
